FAERS Safety Report 9452604 (Version 2)
Quarter: 2013Q3

REPORT INFORMATION
  Report Type: Spontaneous
  Country: US (occurrence: US)
  Receive Date: 20130812
  Receipt Date: 20130903
  Transmission Date: 20140515
  Serious: No
  Sender: FDA-Public Use
  Company Number: US-PFIZER INC-2013232841

PATIENT
  Age: 15 Year
  Sex: Male
  Weight: 70.3 kg

DRUGS (5)
  1. QUILLIVANT XR [Suspect]
     Indication: ATTENTION DEFICIT/HYPERACTIVITY DISORDER
     Dosage: 25 MG, DAILY IN THE MORNING
     Dates: start: 20130502
  2. MINOCYCLINE [Concomitant]
     Indication: ACNE
     Dosage: 100 MG, 2X/DAY
  3. CLINDAMYCIN [Concomitant]
     Dosage: UNK, 2X/DAY
  4. RISPERIDONE [Concomitant]
     Dosage: ONE AND HALF TABLET, 2X/DAY
  5. CELEXA [Concomitant]
     Dosage: 10 MG, DAILY

REACTIONS (2)
  - Nausea [Recovered/Resolved]
  - Vomiting [Recovered/Resolved]
